FAERS Safety Report 17282655 (Version 1)
Quarter: 2020Q1

REPORT INFORMATION
  Report Type: Spontaneous
  Country: US (occurrence: US)
  Receive Date: 20191230
  Receipt Date: 20191230
  Transmission Date: 20200409
  Serious: Yes (Hospitalization)
  Sender: FDA-Public Use
  Company Number: None

PATIENT
  Sex: Male

DRUGS (3)
  1. MERCAPTOPURINE 50MG TAB [Suspect]
     Active Substance: MERCAPTOPURINE
     Indication: ACUTE LYMPHOCYTIC LEUKAEMIA
     Dosage: ?          OTHER DOSE:2-1.5 TABS;?
     Route: 048
     Dates: start: 20191130
  2. TABLOID [Concomitant]
     Active Substance: THIOGUANINE
  3. METHOTREXATE 2.5MG TAB [Suspect]
     Active Substance: METHOTREXATE
     Indication: ACUTE LYMPHOCYTIC LEUKAEMIA
     Route: 048
     Dates: start: 20191130

REACTIONS (2)
  - Therapy cessation [None]
  - Hospitalisation [None]
